FAERS Safety Report 14155812 (Version 2)
Quarter: 2018Q2

REPORT INFORMATION
  Report Type: Spontaneous
  Country: US (occurrence: US)
  Receive Date: 20171103
  Receipt Date: 20180614
  Transmission Date: 20180711
  Serious: Yes (Other)
  Sender: FDA-Public Use
  Company Number: US-BAYER-2017-212387

PATIENT
  Age: 42 Year
  Sex: Female
  Weight: 63.95 kg

DRUGS (2)
  1. MIRENA [Suspect]
     Active Substance: LEVONORGESTREL
     Indication: CONTRACEPTION
     Dosage: 20 MCG/24HR, CONT
     Route: 015
     Dates: start: 20161205, end: 20171010
  2. DOXYCYCLINE HYCLATE. [Concomitant]
     Active Substance: DOXYCYCLINE HYCLATE
     Dosage: 20 MG, BID
     Route: 048

REACTIONS (8)
  - Haemorrhoids [None]
  - Alopecia [None]
  - Procedural dizziness [None]
  - Pain [None]
  - Embedded device [None]
  - Arthralgia [None]
  - Procedural pain [None]
  - Rosacea [None]

NARRATIVE: CASE EVENT DATE: 20161205
